FAERS Safety Report 4507787-8 (Version None)
Quarter: 2004Q4

REPORT INFORMATION
  Report Type: 
  Country: None (occurrence: None)
  Receive Date: 20041123
  Receipt Date: 20041116
  Transmission Date: 20050328
  Serious: Yes (Other)
  Sender: FDA-Public Use
  Company Number: AU-ABBOTT-04P-008-0280808-00

PATIENT
  Age: 16 Year
  Sex: Female

DRUGS (2)
  1. VALPROATE SODIUM [Suspect]
     Indication: DRUG USE FOR UNKNOWN INDICATION
     Route: 048
  2. MEROPENEM [Interacting]
     Indication: BLADDER DISORDER
     Route: 065
     Dates: start: 20040216, end: 20040221

REACTIONS (3)
  - CONVULSION [None]
  - DRUG INTERACTION [None]
  - DRUG LEVEL FLUCTUATING [None]
